FAERS Safety Report 5586052-4 (Version None)
Quarter: 2007Q4

REPORT INFORMATION
  Report Type: 
  Country: None (occurrence: None)
  Receive Date: 20071205
  Receipt Date: 20070430
  Transmission Date: 20080405
  Serious: Yes (Hospitalization, Other)
  Sender: FDA-Public Use
  Company Number: HQWYE917901MAY07

PATIENT
  Age: 86 Year
  Sex: Female
  Weight: 86.26 kg

DRUGS (2)
  1. EFFEXOR XR [Suspect]
     Indication: DEPRESSION
     Dosage: 37.5, FREQUENCY NOT SPECIFIED, ORAL
     Route: 048
  2. COREG [Concomitant]

REACTIONS (1)
  - HYPONATRAEMIA [None]
